FAERS Safety Report 5054286-3 (Version None)
Quarter: 2006Q3

REPORT INFORMATION
  Report Type: 
  Country: None (occurrence: None)
  Receive Date: 20060718
  Receipt Date: 20060706
  Transmission Date: 20061208
  Serious: Yes (Hospitalization)
  Sender: FDA-Public Use
  Company Number: CH-BRISTOL-MYERS SQUIBB COMPANY-13434675

PATIENT
  Age: 71 Year
  Sex: Female

DRUGS (3)
  1. AMIKIN INJ 1 G [Suspect]
     Indication: BACTERIAL INFECTION
     Route: 041
     Dates: start: 20060420, end: 20060424
  2. FORTUM [Suspect]
     Indication: BACTERIAL INFECTION
     Route: 041
     Dates: start: 20060420, end: 20060424
  3. COLISTIN [Suspect]
     Indication: BACTERIAL INFECTION
     Route: 055
     Dates: start: 20060420, end: 20060424

REACTIONS (3)
  - EOSINOPHILIA [None]
  - PRURITUS [None]
  - RASH [None]
